FAERS Safety Report 15426974 (Version 1)
Quarter: 2018Q3

REPORT INFORMATION
  Report Type: Spontaneous
  Country: ES (occurrence: ES)
  Receive Date: 20180925
  Receipt Date: 20180925
  Transmission Date: 20181010
  Serious: Yes (Death)
  Sender: FDA-Public Use
  Company Number: ES-009507513-1809ESP008416

PATIENT
  Age: 52 Year
  Sex: Female
  Weight: 64 kg

DRUGS (14)
  1. KEYTRUDA [Suspect]
     Active Substance: PEMBROLIZUMAB
     Indication: METASTATIC MALIGNANT MELANOMA
     Dosage: HAS RECEIVED 2 CYCLES; CYCLICAL
     Route: 042
     Dates: start: 20180628, end: 20180719
  2. LYRICA [Concomitant]
     Active Substance: PREGABALIN
     Dosage: 75 MG, QD, (LYRICA PRODUCT: 56 CAPSULES)
     Route: 048
     Dates: end: 20180807
  3. ALDACTONE [Concomitant]
     Active Substance: SPIRONOLACTONE
     Dosage: 25 MG, QD
     Route: 048
     Dates: end: 20180807
  4. OMEPRAZOLE. [Concomitant]
     Active Substance: OMEPRAZOLE
     Dosage: 20 MG, QD
     Route: 048
     Dates: end: 20180807
  5. FENDIVIA [Concomitant]
     Active Substance: FENTANYL
     Dosage: 50 MICROGRAM/ EVERY 72 HOURS, (CONCENTRATION: 50 MICROGRAMS/HOUR)
     Route: 062
     Dates: end: 20180807
  6. LANTUS [Concomitant]
     Active Substance: INSULIN GLARGINE
     Indication: TYPE 1 DIABETES MELLITUS
     Dosage: 16 IU, QD (FORMULATION: SOLUTION FOR INJECTION IN PRE?FILLED PEN, CONCENTRATION: 100 UNITS/ML)
     Route: 058
     Dates: end: 20180807
  7. SEVREDOL [Concomitant]
     Active Substance: MORPHINE
     Dosage: 10 MG, Q4H
     Route: 048
     Dates: end: 20180807
  8. LORAZEPAM. [Concomitant]
     Active Substance: LORAZEPAM
     Dosage: 1 MG, QD
     Route: 048
     Dates: end: 20180807
  9. CLEXANE (ENOXAPARIN SODIUM) [Concomitant]
     Active Substance: ENOXAPARIN SODIUM
     Dosage: 100 MG, Q19H, (FORMULATION: 10.000 IU (100MG)/ 1 ML, SOLUTION FOR INJECTION IN PRE?FILLED SYRINGE)
     Route: 058
     Dates: end: 20180807
  10. LACTULOSE. [Concomitant]
     Active Substance: LACTULOSE
     Dosage: 10 G, Q8H
     Route: 048
     Dates: end: 20180807
  11. ACFOL [Concomitant]
     Active Substance: FOLIC ACID
     Dosage: 5 MG, QD
     Route: 048
     Dates: end: 20180807
  12. ACETAMINOPHEN. [Concomitant]
     Active Substance: ACETAMINOPHEN
     Dosage: 1 G, Q8H
     Route: 048
     Dates: end: 20180807
  13. FUROSEMIDE. [Concomitant]
     Active Substance: FUROSEMIDE
     Dosage: 40 MG, QD
     Route: 048
     Dates: end: 20180807
  14. NAPROXEN. [Concomitant]
     Active Substance: NAPROXEN
     Dosage: 500 MG, Q12H
     Route: 048
     Dates: end: 20180807

REACTIONS (3)
  - Autoimmune hypothyroidism [Fatal]
  - Tubulointerstitial nephritis [Fatal]
  - Acute kidney injury [Fatal]

NARRATIVE: CASE EVENT DATE: 20180809
